FAERS Safety Report 13738021 (Version 1)
Quarter: 2017Q3

REPORT INFORMATION
  Report Type: Report from Study
  Country: US (occurrence: US)
  Receive Date: 20170710
  Receipt Date: 20170710
  Transmission Date: 20171127
  Serious: Yes (Other)
  Sender: FDA-Public Use
  Company Number: US-TEVA-784969USA

PATIENT
  Age: 54 Year
  Sex: Female

DRUGS (8)
  1. MECLIZINE [Concomitant]
     Active Substance: MECLIZINE HYDROCHLORIDE
  2. COPAXONE [Suspect]
     Active Substance: GLATIRAMER ACETATE
     Indication: MULTIPLE SCLEROSIS
     Route: 058
     Dates: start: 20170428
  3. CYMBALTA [Concomitant]
     Active Substance: DULOXETINE HYDROCHLORIDE
  4. GABAPENTIN. [Concomitant]
     Active Substance: GABAPENTIN
  5. PROVIGIL [Concomitant]
     Active Substance: MODAFINIL
  6. OXYBUTYNIN [Concomitant]
     Active Substance: OXYBUTYNIN
  7. PREDNISONE. [Concomitant]
     Active Substance: PREDNISONE
  8. BACLOFEN. [Concomitant]
     Active Substance: BACLOFEN

REACTIONS (2)
  - Fall [Recovering/Resolving]
  - Multiple fractures [Recovering/Resolving]

NARRATIVE: CASE EVENT DATE: 20170520
